FAERS Safety Report 4728314-6 (Version None)
Quarter: 2005Q3

REPORT INFORMATION
  Report Type: 
  Country: None (occurrence: None)
  Receive Date: 20050729
  Receipt Date: 20050718
  Transmission Date: 20060218
  Serious: Yes (Hospitalization)
  Sender: FDA-Public Use
  Company Number: NSADSS2002028849

PATIENT
  Sex: Male

DRUGS (7)
  1. REMICADE [Suspect]
     Route: 041
     Dates: start: 20011001
  2. REMICADE [Suspect]
     Indication: RHEUMATOID ARTHRITIS
     Route: 041
     Dates: start: 20011001
  3. PREDNISOLONE [Interacting]
     Indication: RHEUMATOID ARTHRITIS
     Route: 048
     Dates: start: 19910701
  4. METHOTREXATE [Interacting]
     Indication: RHEUMATOID ARTHRITIS
     Dates: start: 19960712
  5. ARAVA [Interacting]
     Indication: RHEUMATOID ARTHRITIS
     Dates: start: 20000310
  6. MICARDIS [Suspect]
     Route: 048
     Dates: start: 20011001
  7. VIOXX [Concomitant]
     Indication: RHEUMATOID ARTHRITIS
     Route: 048
     Dates: start: 19991201

REACTIONS (6)
  - DRUG INTERACTION [None]
  - LOCALISED INFECTION [None]
  - PYODERMA GANGRENOSUM [None]
  - RHEUMATOID ARTHRITIS [None]
  - SKIN ULCER [None]
  - VASCULITIS [None]
